FAERS Safety Report 7436718-6 (Version None)
Quarter: 2011Q1

REPORT INFORMATION
  Report Type: 
  Country: None (occurrence: None)
  Receive Date: 20110302
  Receipt Date: 20101117
  Transmission Date: 20110831
  Serious: No
  Sender: FDA-Public Use
  Company Number: 022237

PATIENT
  Age: 34 Year
  Sex: Female

DRUGS (1)
  1. CIMZIA [Suspect]
     Dosage: 400 MG 1X/2 WEEKS SUBCUTANEOUS
     Route: 058

REACTIONS (4)
  - TONGUE ERUPTION [None]
  - TONGUE DISORDER [None]
  - GLOSSODYNIA [None]
  - OROPHARYNGEAL PAIN [None]
